FAERS Safety Report 5739771-0 (Version None)
Quarter: 2008Q2

REPORT INFORMATION
  Report Type: 
  Country: None (occurrence: None)
  Receive Date: 20080512
  Receipt Date: 20080512
  Transmission Date: 20081010
  Serious: No
  Sender: FDA-Public Use
  Company Number: None

PATIENT
  Sex: Male
  Weight: 73.9363 kg

DRUGS (3)
  1. CREST PRO-HEALTH RINSE, REFRESHI 20 ML CREST [Suspect]
     Indication: DENTAL DISORDER PROPHYLAXIS
     Dosage: 4 TEASPOONFULS TWICE A DAY PO
     Route: 048
     Dates: start: 20080401, end: 20080504
  2. CREST PRO-HEALTH RINSE, REFRESHI 20 ML CREST [Suspect]
     Indication: DENTAL PLAQUE
     Dosage: 4 TEASPOONFULS TWICE A DAY PO
     Route: 048
     Dates: start: 20080401, end: 20080504
  3. CREST PRO-HEALTH RINSE, REFRESHI 20 ML CREST [Suspect]
     Indication: GINGIVITIS
     Dosage: 4 TEASPOONFULS TWICE A DAY PO
     Route: 048
     Dates: start: 20080401, end: 20080504

REACTIONS (1)
  - TOOTH DISCOLOURATION [None]
